FAERS Safety Report 6531012-X (Version None)
Quarter: 2010Q1

REPORT INFORMATION
  Report Type: 
  Country: None (occurrence: None)
  Receive Date: 20100108
  Receipt Date: 20090902
  Transmission Date: 20100710
  Serious: No
  Sender: FDA-Public Use
  Company Number: A0806032A

PATIENT

DRUGS (1)
  1. LOVAZA [Suspect]

REACTIONS (3)
  - DYSGEUSIA [None]
  - ERUCTATION [None]
  - GASTROINTESTINAL DISORDER [None]
